FAERS Safety Report 9998717 (Version 1)
Quarter: 2014Q1

REPORT INFORMATION
  Report Type: Spontaneous
  Country: US (occurrence: US)
  Receive Date: 20140312
  Receipt Date: 20140312
  Transmission Date: 20141002
  Serious: No
  Sender: FDA-Public Use
  Company Number: US-BIOGENIDEC-2014BI019394

PATIENT
  Age: 53 Year
  Sex: Female

DRUGS (6)
  1. TECFIDERA [Suspect]
     Indication: MULTIPLE SCLEROSIS
     Route: 048
     Dates: start: 20140116
  2. ALEVE [Concomitant]
  3. BLACLOFEN [Concomitant]
  4. CELEXA [Concomitant]
  5. OXYBUTYNIN CHLORIDE [Concomitant]
  6. VITAMIN D-3 [Concomitant]

REACTIONS (1)
  - Hypersomnia [Unknown]
